FAERS Safety Report 23825601 (Version 1)
Quarter: 2024Q2

REPORT INFORMATION
  Report Type: Spontaneous
  Country: US (occurrence: None)
  Receive Date: 20240504
  Receipt Date: 20240504
  Transmission Date: 20240717
  Serious: Yes (Hospitalization)
  Sender: FDA-Public Use
  Company Number: None

PATIENT
  Age: 76 Year
  Sex: Male
  Weight: 75.3 kg

DRUGS (3)
  1. PROPOFOL [Suspect]
     Active Substance: PROPOFOL
     Indication: General anaesthesia
     Dosage: 120 MG IV
     Route: 042
     Dates: start: 20230214, end: 20230214
  2. SEVOFLURANE [Suspect]
     Active Substance: SEVOFLURANE
     Dates: start: 20230214, end: 20230214
  3. DESFLURANE [Suspect]
     Active Substance: DESFLURANE

REACTIONS (7)
  - Confusional state [None]
  - Sedation [None]
  - Delirium [None]
  - Cerebrovascular accident [None]
  - Aphasia [None]
  - Fall [None]
  - Ejection fraction decreased [None]

NARRATIVE: CASE EVENT DATE: 20230216
